FAERS Safety Report 4548722-6 (Version None)
Quarter: 2005Q1

REPORT INFORMATION
  Report Type: 
  Country: None (occurrence: None)
  Receive Date: 20050106
  Receipt Date: 20050106
  Transmission Date: 20050727
  Serious: No
  Sender: FDA-Public Use
  Company Number: None

PATIENT
  Age: 45 Year
  Sex: Male

DRUGS (1)
  1. NAFCILLIN SODIUM [Suspect]
     Indication: STAPHYLOCOCCAL INFECTION
     Dosage: 2 G IV Q 6 H
     Route: 042

REACTIONS (3)
  - BLOOD BILIRUBIN INCREASED [None]
  - CARDIAC VENTRICULAR DISORDER [None]
  - HAEMOLYSIS [None]
